FAERS Safety Report 9137897 (Version 3)
Quarter: 2013Q2

REPORT INFORMATION
  Report Type: Spontaneous
  Country: VE (occurrence: VE)
  Receive Date: 20130304
  Receipt Date: 20130613
  Transmission Date: 20140414
  Serious: Yes (Death, Hospitalization, Disabling, Other)
  Sender: FDA-Public Use
  Company Number: VE-ELI_LILLY_AND_COMPANY-VE201302008825

PATIENT
  Age: 67 Year
  Sex: Male

DRUGS (1)
  1. HUMALOG LISPRO [Suspect]
     Indication: TYPE 2 DIABETES MELLITUS
     Dosage: 5 U, PRN
     Route: 058
     Dates: start: 20130121

REACTIONS (5)
  - Multi-organ failure [Fatal]
  - Cerebral haemorrhage [Unknown]
  - Muscle atrophy [Unknown]
  - Weight decreased [Unknown]
  - Mobility decreased [Unknown]
